FAERS Safety Report 24154555 (Version 3)
Quarter: 2024Q3

REPORT INFORMATION
  Report Type: Spontaneous
  Country: EG (occurrence: EG)
  Receive Date: 20240731
  Receipt Date: 20240820
  Transmission Date: 20241017
  Serious: Yes (Hospitalization, Other)
  Sender: NOVO NORDISK
  Company Number: EG-NOVOPROD-1259832

PATIENT
  Age: 75 Year
  Sex: Female
  Weight: 130 kg

DRUGS (17)
  1. NOVORAPID [Suspect]
     Active Substance: INSULIN ASPART
     Dosage: 10 U
     Route: 058
  2. NOVORAPID [Suspect]
     Active Substance: INSULIN ASPART
     Indication: Diabetes mellitus
     Dosage: 8 U
     Route: 058
     Dates: start: 20240520
  3. NOVORAPID [Suspect]
     Active Substance: INSULIN ASPART
     Dosage: 15 U
     Route: 058
  4. NOVORAPID [Suspect]
     Active Substance: INSULIN ASPART
     Dosage: 10 U
     Route: 058
  5. ACTRAPID [Suspect]
     Active Substance: INSULIN HUMAN
     Indication: Diabetes mellitus
     Dosage: UNK
     Route: 058
  6. LANTUS [Concomitant]
     Active Substance: INSULIN GLARGINE
     Indication: Diabetes mellitus
     Dosage: 10 U/NIGHT
     Route: 058
  7. PLENDIL [Concomitant]
     Active Substance: FELODIPINE
     Indication: Hypertension
     Dosage: 10 MG (1 TAB/MORNING)
     Route: 048
     Dates: start: 20240521
  8. ALDOMET [Concomitant]
     Active Substance: METHYLDOPA
     Indication: Hypertension
     Dosage: 250 MG (2 TABS/ 8 HOURS)
     Route: 048
     Dates: start: 20240521
  9. DOXAZOSIN MESYLATE [Concomitant]
     Active Substance: DOXAZOSIN MESYLATE
     Indication: Hypertension
     Dosage: 4 MG (4 TABS)
     Route: 048
     Dates: start: 20240521
  10. BISOPROLOL FUMARATE [Concomitant]
     Active Substance: BISOPROLOL FUMARATE
     Indication: Hypertension
     Dosage: 10 MG, QD
     Route: 048
     Dates: start: 20240521
  11. CONTROLOC [Concomitant]
     Active Substance: PANTOPRAZOLE SODIUM
     Indication: Prophylaxis
     Dosage: 1 TAB/BEFORE BREAKFAST
     Route: 048
  12. ASPIRIN [Concomitant]
     Active Substance: ASPIRIN
     Indication: Haemophilia
     Dosage: 1 TAB/AFTER BREAKFAST
     Route: 048
     Dates: start: 20240521
  13. ELIQUIS [Concomitant]
     Active Substance: APIXABAN
     Indication: Haemophilia
     Dosage: 2.5 MG (TWICE/12 HOURS)
     Route: 048
     Dates: start: 20240521
  14. BENFOTIAMINE\CYANOCOBALAMIN\PYRIDOXINE HYDROCHLORIDE [Concomitant]
     Active Substance: BENFOTIAMINE\CYANOCOBALAMIN\PYRIDOXINE HYDROCHLORIDE
     Indication: Nervous system disorder prophylaxis
     Dosage: 1 TAB/AFTER BREAKFAST
     Route: 048
     Dates: start: 20240521
  15. NITRODERM [Concomitant]
     Active Substance: NITROGLYCERIN
     Indication: Hypertension
     Dosage: UNK (DOSE FILM ON THE CHEST AT NEED)
     Route: 061
     Dates: start: 20240521
  16. LOKELMA [Concomitant]
     Active Substance: SODIUM ZIRCONIUM CYCLOSILICATE
     Indication: Renal disorder
     Dosage: 5 MG, QD (1 EFFERVESCENT DISSOLVES IN WATER WITHOUT TASTE OR COLOR)
     Route: 048
     Dates: start: 20240521
  17. MEXICAM [Concomitant]
     Indication: Gastrointestinal disorder prophylaxis
     Dosage: UNK

REACTIONS (7)
  - Bone erosion [Not Recovered/Not Resolved]
  - Renal function test abnormal [Not Recovered/Not Resolved]
  - Hyperglycaemia [Unknown]
  - Hypertension [Recovered/Resolved]
  - Renal colic [Recovered/Resolved]
  - Nephrolithiasis [Recovered/Resolved]
  - Wrong technique in product usage process [Unknown]
